FAERS Safety Report 18070081 (Version 1)
Quarter: 2020Q3

REPORT INFORMATION
  Report Type: Spontaneous
  Country: US (occurrence: US)
  Receive Date: 20200727
  Receipt Date: 20200727
  Transmission Date: 20201103
  Serious: Yes (Hospitalization, Other)
  Sender: FDA-Public Use
  Company Number: US-ACCORD-189201

PATIENT
  Age: 76 Year
  Sex: Male

DRUGS (2)
  1. TOCILIZUMAB. [Suspect]
     Active Substance: TOCILIZUMAB
     Indication: COVID-19
  2. CLOZAPINE. [Suspect]
     Active Substance: CLOZAPINE
     Indication: SCHIZOAFFECTIVE DISORDER BIPOLAR TYPE
     Dosage: NIGHTLY (QHS), 200 MG

REACTIONS (3)
  - Catatonia [Recovered/Resolved]
  - Neutropenia [Recovered/Resolved]
  - Drug level increased [Recovered/Resolved]
